FAERS Safety Report 9193566 (Version 1)
Quarter: 2013Q1

REPORT INFORMATION
  Report Type: Spontaneous
  Country: US (occurrence: US)
  Receive Date: 20130327
  Receipt Date: 20130327
  Transmission Date: 20140127
  Serious: Yes (Other)
  Sender: FDA-Public Use
  Company Number: US-BRISTOL-MYERS SQUIBB COMPANY-18697250

PATIENT
  Age: 58 Year
  Sex: Female

DRUGS (1)
  1. ORENCIA [Suspect]
     Dosage: LAST INF:21FEB2013
     Route: 041

REACTIONS (7)
  - Type 2 diabetes mellitus [Unknown]
  - Dyspepsia [Unknown]
  - Swelling [Unknown]
  - Drug ineffective [Unknown]
  - Vomiting [Unknown]
  - Diarrhoea [Unknown]
  - Rheumatoid arthritis [Unknown]
